FAERS Safety Report 7264153-2 (Version None)
Quarter: 2011Q1

REPORT INFORMATION
  Report Type: 
  Country: None (occurrence: None)
  Receive Date: 20110131
  Receipt Date: 20110119
  Transmission Date: 20110831
  Serious: Yes (Hospitalization)
  Sender: FDA-Public Use
  Company Number: US-BIOGENIDEC-2011BI000614

PATIENT
  Age: 52 Year
  Sex: Female

DRUGS (1)
  1. TYSABRI [Suspect]
     Indication: MULTIPLE SCLEROSIS
     Route: 042
     Dates: start: 20091113

REACTIONS (13)
  - ARTHRALGIA [None]
  - HYPOAESTHESIA [None]
  - FATIGUE [None]
  - BLOOD SODIUM DECREASED [None]
  - DYSURIA [None]
  - DYSPNOEA [None]
  - GENERALISED ERYTHEMA [None]
  - MUSCULAR WEAKNESS [None]
  - CARPAL TUNNEL SYNDROME [None]
  - MULTIPLE SCLEROSIS [None]
  - OEDEMA PERIPHERAL [None]
  - PRURITUS ALLERGIC [None]
  - DEPRESSION [None]
